FAERS Safety Report 7769252-4 (Version None)
Quarter: 2011Q3

REPORT INFORMATION
  Report Type: 
  Country: None (occurrence: None)
  Receive Date: 20110922
  Receipt Date: 20110915
  Transmission Date: 20111222
  Serious: Yes (Hospitalization, Other)
  Sender: FDA-Public Use
  Company Number: US-AMGEN-USASP2011032407

PATIENT
  Age: 77 Year
  Sex: Female

DRUGS (1)
  1. PROLIA [Suspect]
     Indication: OSTEOPOROSIS POSTMENOPAUSAL
     Dosage: 60 MG, Q6MO
     Dates: start: 20110120, end: 20110120

REACTIONS (12)
  - MUSCULOSKELETAL PAIN [None]
  - NEUROPATHY PERIPHERAL [None]
  - NECK PAIN [None]
  - CARDIAC DISORDER [None]
  - ANXIETY [None]
  - BACK PAIN [None]
  - MYALGIA [None]
  - PAIN IN EXTREMITY [None]
  - PANIC ATTACK [None]
  - MALAISE [None]
  - FEELING ABNORMAL [None]
  - HEART RATE IRREGULAR [None]
